FAERS Safety Report 14349582 (Version 1)
Quarter: 2018Q1

REPORT INFORMATION
  Report Type: Spontaneous
  Country: US (occurrence: US)
  Receive Date: 20180103
  Receipt Date: 20180103
  Transmission Date: 20180509
  Serious: Yes (Other)
  Sender: FDA-Public Use
  Company Number: None

PATIENT
  Age: 29 Year
  Sex: Female

DRUGS (1)
  1. FELBAMATE, 600 MG [Suspect]
     Active Substance: FELBAMATE
     Indication: FOCAL DYSCOGNITIVE SEIZURES
     Route: 048

REACTIONS (1)
  - Seizure [None]

NARRATIVE: CASE EVENT DATE: 20160118
